FAERS Safety Report 10089798 (Version 1)
Quarter: 2014Q2

REPORT INFORMATION
  Report Type: Spontaneous
  Country: CN (occurrence: None)
  Receive Date: 20140417
  Receipt Date: 20140417
  Transmission Date: 20141212
  Serious: Yes (Hospitalization)
  Sender: FDA-Public Use
  Company Number: UTC-046477

PATIENT
  Sex: Female

DRUGS (1)
  1. REMODULIN [Suspect]
     Indication: PULMONARY ARTERIAL HYPERTENSION
     Dates: start: 20140307, end: 20140327

REACTIONS (6)
  - Oliguria [None]
  - Generalised oedema [None]
  - Injection site erythema [None]
  - Pyrexia [None]
  - Oedema peripheral [None]
  - Generalised oedema [None]
